FAERS Safety Report 18651010 (Version 1)
Quarter: 2020Q4

REPORT INFORMATION
  Report Type: Spontaneous
  Country: US (occurrence: US)
  Receive Date: 20201223
  Receipt Date: 20201223
  Transmission Date: 20210114
  Serious: No
  Sender: FDA-Public Use
  Company Number: US-AMGEN INC.-USASP2020206685

PATIENT
  Sex: Male

DRUGS (2)
  1. PHILLIPS [DOCUSATE SODIUM] [Suspect]
     Active Substance: DOCUSATE SODIUM
     Indication: CONSTIPATION
     Dosage: UNK
     Route: 065
  2. AIMOVIG [Suspect]
     Active Substance: ERENUMAB-AOOE
     Indication: MIGRAINE PROPHYLAXIS
     Dosage: 140 MILLIGRAM, QMO
     Route: 065
     Dates: start: 2018

REACTIONS (5)
  - Blood pressure increased [Recovered/Resolved]
  - Muscle spasms [Unknown]
  - Diarrhoea [Unknown]
  - Mass [Recovered/Resolved]
  - Constipation [Not Recovered/Not Resolved]
